FAERS Safety Report 7184038-X (Version None)
Quarter: 2010Q4

REPORT INFORMATION
  Report Type: 
  Country: None (occurrence: None)
  Receive Date: 20101222
  Receipt Date: 20101208
  Transmission Date: 20110411
  Serious: Yes (Hospitalization, Other)
  Sender: FDA-Public Use
  Company Number: PHEH2006US14750

PATIENT
  Sex: Female
  Weight: 85.261 kg

DRUGS (53)
  1. AREDIA [Suspect]
     Dosage: UNK
     Dates: start: 19990101
  2. ZOMETA [Suspect]
     Dosage: UNK
     Dates: end: 20050101
  3. HERCEPTIN [Concomitant]
  4. NAVELBINE [Concomitant]
  5. CIPROFLOXACIN [Concomitant]
  6. VITAMIN D [Concomitant]
     Indication: OSTEOPOROSIS
  7. ANTIHISTAMINES [Concomitant]
  8. ALOXI [Concomitant]
  9. KYTRIL [Concomitant]
  10. CALCIUM [Concomitant]
  11. OXYCONTIN [Concomitant]
  12. METHADONE [Concomitant]
  13. FASLODEX [Concomitant]
  14. AMOXICILLIN [Concomitant]
  15. FLEXERIL [Concomitant]
  16. LIDOCAINE [Concomitant]
  17. AUGMENTIN '125' [Concomitant]
  18. CLONAZEPAM [Concomitant]
  19. SEROQUEL [Concomitant]
     Indication: MOOD SWINGS
     Dosage: 50 MG Q PM
  20. OXYCODONE [Concomitant]
  21. EFFEXOR [Concomitant]
     Indication: DEPRESSION
     Dosage: 75 MG, BID
  22. PRILOSEC [Concomitant]
  23. LOVENOX [Concomitant]
     Dosage: BI-WEEK
  24. VITAMIN B-12 [Concomitant]
  25. FOLIC ACID [Concomitant]
  26. REQUIP [Concomitant]
  27. ETODOLAC [Concomitant]
     Dosage: 1 DF, QD
  28. ATIVAN [Concomitant]
     Indication: SLEEP DISORDER
     Dosage: 1 MG, PRN
  29. CHLORHEXIDINE GLUCONATE [Concomitant]
  30. TAMOXIFEN CITRATE [Concomitant]
  31. FEMARA [Concomitant]
  32. TAXOTERE [Concomitant]
  33. ZYPREXA [Concomitant]
     Dosage: ONE TABLET AT BEDTIME
     Route: 048
     Dates: start: 20090225
  34. ADVAIR [Concomitant]
     Dosage: UNK
     Dates: start: 20090123
  35. COMPAZINE [Concomitant]
     Dosage: UNK
     Dates: start: 20081223
  36. TORADOL [Concomitant]
     Indication: PAIN
     Dosage: UNK
  37. ACETAMINOPHEN [Concomitant]
     Indication: PAIN
  38. LORATADINE [Concomitant]
     Indication: UPPER RESPIRATORY TRACT INFECTION
  39. ALBUTEROL [Concomitant]
     Indication: DYSPNOEA
  40. LORAZEPAM [Concomitant]
     Indication: INSOMNIA
  41. VICODIN [Concomitant]
     Indication: PAIN
  42. NEURONTIN [Concomitant]
     Dosage: 600 MG, BID
  43. AZITHROMYCIN [Concomitant]
     Indication: MUSCLE SPASMS
     Dosage: 1 MG, Q12H, PRN
  44. BEXTRA [Concomitant]
     Dosage: 20 MG, QD
  45. XELODA [Concomitant]
  46. COUMADIN [Concomitant]
  47. DOXIL [Concomitant]
  48. GEMCITABINE [Concomitant]
  49. METOCLOPRAMIDE [Concomitant]
  50. PROXETINE [Concomitant]
  51. MORPHINE [Concomitant]
  52. VIOXX [Concomitant]
  53. IRON [Concomitant]

REACTIONS (100)
  - ABDOMINAL MASS [None]
  - ABDOMINAL PAIN [None]
  - ACTINOMYCOSIS [None]
  - ALBUMIN GLOBULIN RATIO DECREASED [None]
  - ALOPECIA [None]
  - ALVEOLITIS [None]
  - AMNESIA [None]
  - ANGINA PECTORIS [None]
  - ANXIETY [None]
  - ARTERIOSCLEROSIS [None]
  - ARTHRALGIA [None]
  - ATAXIA [None]
  - BACK PAIN [None]
  - BLOOD GLUCOSE INCREASED [None]
  - BLOOD PRESSURE INCREASED [None]
  - BRONCHITIS [None]
  - CALCIFICATION METASTATIC [None]
  - CELLULITIS [None]
  - CEREBROVASCULAR DISORDER [None]
  - DEBRIDEMENT [None]
  - DECREASED APPETITE [None]
  - DECREASED INTEREST [None]
  - DENTAL FISTULA [None]
  - DEPRESSION [None]
  - DIZZINESS [None]
  - DYSARTHRIA [None]
  - DYSPNOEA [None]
  - EAR HAEMORRHAGE [None]
  - EAR PAIN [None]
  - ENCEPHALITIS HERPES [None]
  - EOSINOPHIL COUNT DECREASED [None]
  - FAT NECROSIS [None]
  - FATIGUE [None]
  - FEELING ABNORMAL [None]
  - FIBROMYALGIA [None]
  - FOLATE DEFICIENCY [None]
  - GAIT DISTURBANCE [None]
  - GENERAL PHYSICAL HEALTH DETERIORATION [None]
  - GLOBULINS INCREASED [None]
  - HAEMATOCRIT DECREASED [None]
  - HAEMOGLOBIN DECREASED [None]
  - HEADACHE [None]
  - HEPATIC NEOPLASM [None]
  - HIATUS HERNIA [None]
  - HYPERKERATOSIS [None]
  - HYPOAESTHESIA [None]
  - INFLAMMATION [None]
  - INSOMNIA [None]
  - INTERVERTEBRAL DISC DEGENERATION [None]
  - JOINT INJURY [None]
  - LACUNAR INFARCTION [None]
  - LEFT VENTRICULAR HYPERTROPHY [None]
  - LEUKODYSTROPHY [None]
  - LUMBAR RADICULOPATHY [None]
  - LUNG NEOPLASM [None]
  - LYMPH NODE PALPABLE [None]
  - LYMPHOCYTE COUNT DECREASED [None]
  - LYMPHOEDEMA [None]
  - MASS [None]
  - MAXILLOFACIAL OPERATION [None]
  - MENTAL STATUS CHANGES [None]
  - MONOCYTE COUNT DECREASED [None]
  - MOOD SWINGS [None]
  - MUSCULOSKELETAL CHEST PAIN [None]
  - NECK MASS [None]
  - NEUROPATHY PERIPHERAL [None]
  - NEUTROPHIL COUNT INCREASED [None]
  - NODULE [None]
  - NORMOCHROMIC NORMOCYTIC ANAEMIA [None]
  - OBSTRUCTIVE AIRWAYS DISORDER [None]
  - OEDEMA PERIPHERAL [None]
  - OESOPHAGITIS [None]
  - ORTHOSTATIC HYPOTENSION [None]
  - OSTEOMYELITIS [None]
  - OSTEONECROSIS OF JAW [None]
  - OSTEOPOROSIS [None]
  - PAIN [None]
  - PAIN IN JAW [None]
  - PANCREATIC CYST [None]
  - PERIVASCULAR DERMATITIS [None]
  - PNEUMONIA [None]
  - PNEUMONIA ASPIRATION [None]
  - PYREXIA [None]
  - RED BLOOD CELL COUNT DECREASED [None]
  - RESTLESS LEGS SYNDROME [None]
  - SARCOIDOSIS [None]
  - SCIATICA [None]
  - SCOLIOSIS [None]
  - SINUSITIS [None]
  - SKIN OEDEMA [None]
  - SLEEP DISORDER [None]
  - SPINAL COLUMN STENOSIS [None]
  - SPINAL OSTEOARTHRITIS [None]
  - STRESS FRACTURE [None]
  - THYROID NEOPLASM [None]
  - TOOTH EXTRACTION [None]
  - UPPER RESPIRATORY TRACT CONGESTION [None]
  - UPPER RESPIRATORY TRACT INFECTION [None]
  - URINARY TRACT INFECTION [None]
  - WHITE BLOOD CELL COUNT INCREASED [None]
